FAERS Safety Report 17904424 (Version 1)
Quarter: 2020Q2

REPORT INFORMATION
  Report Type: Spontaneous
  Country: PT (occurrence: PT)
  Receive Date: 20200617
  Receipt Date: 20200617
  Transmission Date: 20200714
  Serious: Yes (Hospitalization, Other)
  Sender: FDA-Public Use
  Company Number: PT-AUROBINDO-AUR-APL-2020-028875

PATIENT
  Age: 33 Year
  Sex: Female

DRUGS (4)
  1. AMPICILLIN [Suspect]
     Active Substance: AMPICILLIN
     Indication: ANALGESIC THERAPY
     Dosage: 10 MILLILITER
     Route: 008
  2. SUFENTANIL [Suspect]
     Active Substance: SUFENTANIL
     Indication: ANALGESIC THERAPY
     Dosage: 10 MICROGRAM (IN A TOTAL OF 12 ML OF SOLUTION)
     Route: 065
  3. ROPIVACAINE 2MG/ML [Suspect]
     Active Substance: ROPIVACAINE HYDROCHLORIDE
     Indication: ANALGESIC THERAPY
     Dosage: 20 MILLIGRAM
     Route: 065
  4. ROPIVACAINE 2MG/ML [Suspect]
     Active Substance: ROPIVACAINE HYDROCHLORIDE
     Dosage: 20 MILLIGRAM (WAS REPEATED, TOTAL OF THREE ADMIN?ISTRATIONS UNTIL DELIVERY)
     Route: 065

REACTIONS (2)
  - Exposure during pregnancy [Unknown]
  - Incorrect route of product administration [Unknown]
